FAERS Safety Report 9183353 (Version 1)
Quarter: 2012Q4

REPORT INFORMATION
  Report Type: 
  Country: US (occurrence: US)
  Receive Date: 20121030
  Receipt Date: 20121030
  Transmission Date: 20130627
  Serious: Yes (Other)
  Sender: FDA-Public Use
  Company Number: US-JNJFOC-20121010592

PATIENT
  Sex: Male
  Weight: 83.92 kg

DRUGS (2)
  1. DURAGESIC [Suspect]
     Indication: COMPLEX REGIONAL PAIN SYNDROME
     Dosage: 3-100 ug/hr+50 ug/hr
     Route: 062
  2. FENTANYL PATCH [Suspect]
     Indication: COMPLEX REGIONAL PAIN SYNDROME
     Dosage: 3-100 ug/hr+50 ug/hr
     Route: 062

REACTIONS (13)
  - Bedridden [Not Recovered/Not Resolved]
  - Nerve injury [Not Recovered/Not Resolved]
  - Wrong technique in drug usage process [Not Recovered/Not Resolved]
  - Application site pain [Not Recovered/Not Resolved]
  - Pain in extremity [Not Recovered/Not Resolved]
  - Drug ineffective [Recovered/Resolved]
  - Product quality issue [Unknown]
  - Incorrect dose administered [Unknown]
  - Dermatitis contact [Recovered/Resolved]
  - Rash [Recovered/Resolved]
  - Skin irritation [Recovered/Resolved]
  - Condition aggravated [None]
  - Hyperhidrosis [None]
